FAERS Safety Report 14852668 (Version 2)
Quarter: 2018Q2

REPORT INFORMATION
  Report Type: Report from Study
  Country: DE (occurrence: DE)
  Receive Date: 20180507
  Receipt Date: 20180608
  Transmission Date: 20180711
  Serious: Yes (Hospitalization)
  Sender: FDA-Public Use
  Company Number: DE-ACTELION-A-CH2018-170525

PATIENT
  Age: 83 Year
  Sex: Male
  Weight: 62.2 kg

DRUGS (32)
  1. MARCUMAR [Concomitant]
     Active Substance: PHENPROCOUMON
     Indication: THROMBOSIS PROPHYLAXIS
     Dosage: 3 MG, PRN
     Route: 048
     Dates: start: 201601
  2. BISOPROLOL [Concomitant]
     Active Substance: BISOPROLOL
     Dosage: 5 MG, OD
     Route: 048
     Dates: start: 20180504
  3. BLINDED PLACEBO [Suspect]
     Active Substance: INVESTIGATIONAL PRODUCT
     Indication: CARDIAC FAILURE
     Dosage: UNK UNK, OD
     Route: 048
  4. MACITENTAN [Suspect]
     Active Substance: MACITENTAN
     Indication: PULMONARY VASCULAR DISORDER
  5. BISOPROLOL [Concomitant]
     Active Substance: BISOPROLOL
     Indication: HYPERTENSION
     Dosage: 7.5 MG, OD
     Route: 048
     Dates: start: 2003, end: 20180323
  6. COLESTYRAMIN HEXAL [Concomitant]
     Active Substance: CHOLESTYRAMINE
     Indication: HYPERCHOLESTEROLAEMIA
     Dosage: 4.0 G, OD
     Route: 048
     Dates: start: 20180428
  7. CEFPODOXIME [Concomitant]
     Active Substance: CEFPODOXIME
     Indication: CYSTITIS
     Dosage: 200 MG, BID
     Route: 048
     Dates: start: 20180303, end: 20180307
  8. KA-VIT EUROMEDICA [Concomitant]
     Indication: INTERNATIONAL NORMALISED RATIO INCREASED
     Dosage: 5 DROP, OD
     Route: 048
     Dates: start: 20180425
  9. COLESTYRAMIN HEXAL [Concomitant]
     Active Substance: CHOLESTYRAMINE
     Indication: DIARRHOEA
     Dosage: 4.0 G, OD
     Route: 048
     Dates: start: 2006, end: 20180406
  10. HCT [Concomitant]
     Active Substance: HYDROCHLOROTHIAZIDE
     Indication: HYPERTENSION
     Dosage: 25 MG, OD
     Route: 048
     Dates: start: 20180322, end: 20180407
  11. CLEXANE [Concomitant]
     Active Substance: ENOXAPARIN SODIUM
     Indication: THROMBOSIS PROPHYLAXIS
     Dosage: UNK
     Route: 058
     Dates: start: 20180427
  12. OXYGEN. [Concomitant]
     Active Substance: OXYGEN
     Dosage: 2 L/MIN, UNK
     Route: 055
     Dates: start: 20180504
  13. BLINDED MACITENTAN [Suspect]
     Active Substance: MACITENTAN
     Indication: PULMONARY VASCULAR DISORDER
  14. MACITENTAN [Suspect]
     Active Substance: MACITENTAN
     Indication: CARDIAC FAILURE
     Dosage: 10 MG, OD
     Route: 048
     Dates: start: 20180321, end: 20180425
  15. TORASEMID [Concomitant]
     Active Substance: TORSEMIDE
     Dosage: 10 MG, BID
     Route: 048
     Dates: start: 20180401
  16. SPIRONOLACTON [Concomitant]
     Active Substance: SPIRONOLACTONE
     Indication: OEDEMA PERIPHERAL
     Dosage: 25 MG, BID
     Route: 048
     Dates: start: 201608, end: 20180325
  17. SPIRONOLACTON [Concomitant]
     Active Substance: SPIRONOLACTONE
     Dosage: 25 MG, BID
     Route: 048
     Dates: start: 20180502
  18. KALINOR RETARD P [Concomitant]
     Active Substance: POTASSIUM CHLORIDE
     Indication: PROPHYLAXIS
     Dosage: 600 MG, PRN
     Route: 048
     Dates: start: 20180409, end: 20180425
  19. TORASEMID [Concomitant]
     Active Substance: TORSEMIDE
     Indication: OEDEMA PERIPHERAL
     Dosage: 25 MG, BID
     Route: 048
     Dates: start: 201608, end: 20180228
  20. KONAKION [Concomitant]
     Active Substance: PHYTONADIONE
     Indication: INTERNATIONAL NORMALISED RATIO INCREASED
     Dosage: 20 DROP, SINGLE
     Route: 048
     Dates: start: 20180322, end: 20180322
  21. OXYGEN. [Concomitant]
     Active Substance: OXYGEN
     Indication: CARDIAC FAILURE
     Dosage: 3 L/MIN, UNK
     Route: 055
     Dates: start: 20180425, end: 20180503
  22. TORASEMID [Concomitant]
     Active Substance: TORSEMIDE
     Dosage: 20 MG, BID
     Route: 048
     Dates: start: 20180228, end: 20180321
  23. PANTOPRAZOLE [Concomitant]
     Active Substance: PANTOPRAZOLE
     Indication: PROPHYLAXIS
     Dosage: 40 MG, OD
     Route: 042
     Dates: end: 20180404
  24. BLINDED PLACEBO [Suspect]
     Active Substance: INVESTIGATIONAL PRODUCT
     Indication: PULMONARY VASCULAR DISORDER
  25. MACITENTAN [Suspect]
     Active Substance: MACITENTAN
     Indication: CARDIAC FAILURE
     Dosage: 10 MG, OD
     Route: 048
     Dates: start: 20180321, end: 20180425
  26. MACITENTAN [Suspect]
     Active Substance: MACITENTAN
     Indication: PULMONARY VASCULAR DISORDER
  27. HCT [Concomitant]
     Active Substance: HYDROCHLOROTHIAZIDE
     Dosage: 12.5 MG, OD
     Route: 048
     Dates: start: 20180408
  28. PANTOPRAZOLE [Concomitant]
     Active Substance: PANTOPRAZOLE
     Dosage: 40 MG, OD
     Route: 048
     Dates: start: 20180404
  29. BLINDED MACITENTAN [Suspect]
     Active Substance: MACITENTAN
     Indication: CARDIAC FAILURE
     Dosage: UNK UNK, OD
     Route: 048
  30. TORASEMID [Concomitant]
     Active Substance: TORSEMIDE
     Dosage: 25 MG, BID
     Dates: start: 20180322, end: 20180330
  31. POTASSIUM BICARBONATE/CITRIC ACID [Concomitant]
     Indication: PROPHYLAXIS
     Dosage: 40 MMOL, PRN
     Route: 048
     Dates: start: 20180426
  32. OXYGEN. [Concomitant]
     Active Substance: OXYGEN
     Indication: HYPERCAPNIA
     Dosage: 2 L/MIN, UNK
     Route: 055
     Dates: start: 201712, end: 20180424

REACTIONS (10)
  - Anaemia [Not Recovered/Not Resolved]
  - Cardiac failure [Recovered/Resolved with Sequelae]
  - Acute kidney injury [Recovered/Resolved with Sequelae]
  - Hepatic congestion [Unknown]
  - International normalised ratio increased [Unknown]
  - Blood alkaline phosphatase increased [Unknown]
  - Oedema [Not Recovered/Not Resolved]
  - Transfusion [Unknown]
  - Dyspnoea [Recovered/Resolved with Sequelae]
  - Weight increased [Recovered/Resolved with Sequelae]

NARRATIVE: CASE EVENT DATE: 20180407
